FAERS Safety Report 19072915 (Version 1)
Quarter: 2021Q1

REPORT INFORMATION
  Report Type: Spontaneous
  Country: US (occurrence: US)
  Receive Date: 20210330
  Receipt Date: 20210330
  Transmission Date: 20210420
  Serious: Yes (Hospitalization)
  Sender: FDA-Public Use
  Company Number: None

PATIENT
  Age: 25 Year
  Sex: Female
  Weight: 59.85 kg

DRUGS (8)
  1. SINGULAIR [Suspect]
     Active Substance: MONTELUKAST SODIUM
     Indication: ASTHMA
     Dosage: ?          QUANTITY:1 TABLET(S);?
     Route: 048
  2. ZOLOFT [Concomitant]
     Active Substance: SERTRALINE HYDROCHLORIDE
  3. COENZYME Q10 [Concomitant]
     Active Substance: DIETARY SUPPLEMENT\UBIDECARENONE
  4. SINGULAIR [Suspect]
     Active Substance: MONTELUKAST SODIUM
     Indication: MULTIPLE ALLERGIES
     Dosage: ?          QUANTITY:1 TABLET(S);?
     Route: 048
  5. SINGULAIR [Concomitant]
     Active Substance: MONTELUKAST SODIUM
  6. FOLIC ACID. [Concomitant]
     Active Substance: FOLIC ACID
  7. FLONASE [Concomitant]
     Active Substance: FLUTICASONE PROPIONATE
  8. MAGNESIUM [Concomitant]
     Active Substance: MAGNESIUM

REACTIONS (15)
  - Migraine [None]
  - Dizziness [None]
  - Muscle twitching [None]
  - Nightmare [None]
  - Dysphemia [None]
  - Anxiety [None]
  - Tremor [None]
  - Adverse drug reaction [None]
  - Vision blurred [None]
  - Myalgia [None]
  - Memory impairment [None]
  - Insomnia [None]
  - Panic attack [None]
  - Depressed level of consciousness [None]
  - Paraesthesia [None]

NARRATIVE: CASE EVENT DATE: 20210301
